FAERS Safety Report 4869535-1 (Version None)
Quarter: 2005Q4

REPORT INFORMATION
  Report Type: 
  Country: None (occurrence: None)
  Receive Date: 20051227
  Receipt Date: 20051208
  Transmission Date: 20060501
  Serious: Yes (Hospitalization)
  Sender: FDA-Public Use
  Company Number: FR-JNJFOC-20051202552

PATIENT
  Sex: Male
  Weight: 2.5 kg

DRUGS (3)
  1. HALDOL [Suspect]
     Dosage: TRANSPLACENTAL
     Route: 064
     Dates: start: 20050201, end: 20051025
  2. ATARAX [Suspect]
     Dosage: TRANSPLACENTAL
     Route: 064
     Dates: start: 20050201, end: 20051025
  3. CHLORPROMAZINE HCL [Suspect]
     Dosage: TRANSPLACENTAL
     Route: 064
     Dates: start: 20050201, end: 20051025

REACTIONS (4)
  - CAESAREAN SECTION [None]
  - DRUG EXPOSURE DURING PREGNANCY [None]
  - DRUG WITHDRAWAL SYNDROME NEONATAL [None]
  - FEEDING DISORDER NEONATAL [None]
